FAERS Safety Report 11803621 (Version 1)
Quarter: 2015Q4

REPORT INFORMATION
  Report Type: Spontaneous
  Country: US (occurrence: US)
  Receive Date: 20151204
  Receipt Date: 20151204
  Transmission Date: 20160305
  Serious: Yes (Hospitalization)
  Sender: FDA-Public Use
  Company Number: US-ENDO PHARMACEUTICALS INC.-201501102

PATIENT
  Age: 68 Year
  Sex: Male
  Weight: 99.88 kg

DRUGS (19)
  1. PRISTIQ EXTENDED RELEASE [Concomitant]
     Active Substance: DESVENLAFAXINE SUCCINATE
  2. SEROQUEL [Concomitant]
     Active Substance: QUETIAPINE FUMARATE
  3. TESTOPEL [Suspect]
     Active Substance: TESTOSTERONE
     Indication: BENIGN PROSTATIC HYPERPLASIA
  4. ANDROGEL [Suspect]
     Active Substance: TESTOSTERONE
     Indication: BLOOD TESTOSTERONE DECREASED
     Dates: start: 20110105, end: 20110428
  5. LOVAZA [Concomitant]
     Active Substance: OMEGA-3-ACID ETHYL ESTERS
  6. FORTESTA [Suspect]
     Active Substance: TESTOSTERONE
     Indication: BLOOD TESTOSTERONE DECREASED
     Dates: start: 20110428, end: 20110731
  7. TESTIM [Suspect]
     Active Substance: TESTOSTERONE
     Indication: BENIGN PROSTATIC HYPERPLASIA
  8. TESTOPEL [Suspect]
     Active Substance: TESTOSTERONE
     Indication: BLOOD TESTOSTERONE DECREASED
     Route: 058
     Dates: start: 20110713, end: 20120724
  9. TESTIM [Suspect]
     Active Substance: TESTOSTERONE
     Indication: BLOOD TESTOSTERONE DECREASED
     Dates: start: 20091210, end: 20110105
  10. ANDROGEL [Suspect]
     Active Substance: TESTOSTERONE
     Indication: BENIGN PROSTATIC HYPERPLASIA
     Dosage: THIS SCRIPT NOT USED
     Dates: start: 20140603
  11. PLAVIX [Concomitant]
     Active Substance: CLOPIDOGREL BISULFATE
  12. METOPROLOL [Concomitant]
     Active Substance: METOPROLOL
  13. ASPIRIN. [Concomitant]
     Active Substance: ASPIRIN
  14. LISINOPRIL. [Concomitant]
     Active Substance: LISINOPRIL
  15. VALIUM [Concomitant]
     Active Substance: DIAZEPAM
     Dosage: PRN
  16. FORTESTA [Suspect]
     Active Substance: TESTOSTERONE
     Indication: BENIGN PROSTATIC HYPERPLASIA
  17. DIOVAN [Concomitant]
     Active Substance: VALSARTAN
  18. ZOCOR [Concomitant]
     Active Substance: SIMVASTATIN
     Dosage: TAKE AT HS
  19. UROXATRAL [Concomitant]
     Active Substance: ALFUZOSIN HYDROCHLORIDE

REACTIONS (2)
  - Pulmonary embolism [Unknown]
  - Subclavian vein thrombosis [Unknown]

NARRATIVE: CASE EVENT DATE: 20110915
